FAERS Safety Report 12101041 (Version 1)
Quarter: 2016Q1

REPORT INFORMATION
  Report Type: Spontaneous
  Country: ES (occurrence: ES)
  Receive Date: 20160222
  Receipt Date: 20160222
  Transmission Date: 20160526
  Serious: Yes (Other)
  Sender: FDA-Public Use
  Company Number: ALCN2016ES001294

PATIENT
  Age: 23 Year
  Sex: Female

DRUGS (3)
  1. TOBRADEX [Suspect]
     Active Substance: DEXAMETHASONE\TOBRAMYCIN
     Indication: POSTOPERATIVE CARE
     Dosage: UNK
     Route: 047
  2. SODIUM CHLORIDE. [Suspect]
     Active Substance: SODIUM CHLORIDE
     Indication: POSTOPERATIVE CARE
     Dosage: UNK
     Route: 047
  3. DACORTIN [Suspect]
     Active Substance: PREDNISONE
     Indication: POSTOPERATIVE CARE
     Dosage: UNK
     Route: 048

REACTIONS (1)
  - Ophthalmic herpes simplex [Recovered/Resolved]
